FAERS Safety Report 5912237-0 (Version None)
Quarter: 2008Q4

REPORT INFORMATION
  Report Type: 
  Country: None (occurrence: None)
  Receive Date: 20081008
  Receipt Date: 20081001
  Transmission Date: 20090506
  Serious: Yes (Other)
  Sender: FDA-Public Use
  Company Number: A0750065A

PATIENT
  Age: 21 Year
  Sex: Male

DRUGS (3)
  1. WELLBUTRIN XL [Suspect]
     Indication: DEPRESSION
     Dosage: 300MG PER DAY
     Route: 048
  2. CLONAZEPAM [Concomitant]
  3. XANAX [Concomitant]

REACTIONS (3)
  - FATIGUE [None]
  - HALLUCINATION, VISUAL [None]
  - SOLILOQUY [None]
